FAERS Safety Report 9468233 (Version 2)
Quarter: 2013Q3

REPORT INFORMATION
  Report Type: Spontaneous
  Country: US (occurrence: US)
  Receive Date: 20130821
  Receipt Date: 20130829
  Transmission Date: 20140515
  Serious: No
  Sender: FDA-Public Use
  Company Number: US-009507513-1308USA009487

PATIENT
  Age: 87 Year
  Sex: Female
  Weight: 40.82 kg

DRUGS (4)
  1. MIRALAX [Suspect]
     Indication: CONSTIPATION
     Dosage: 17 G, ONCE
     Route: 048
  2. MIRALAX [Suspect]
     Indication: MEDICAL OBSERVATION
  3. METOPROLOL [Concomitant]
     Indication: HYPERTENSION
     Dosage: UNK, UNKNOWN
  4. ATIVAN [Concomitant]
     Indication: SLEEP DISORDER THERAPY
     Dosage: UNK, UNKNOWN

REACTIONS (8)
  - Drug intolerance [Recovered/Resolved]
  - Circumstance or information capable of leading to medication error [Unknown]
  - Abdominal pain upper [Recovering/Resolving]
  - Abdominal discomfort [Recovering/Resolving]
  - Dyspepsia [Recovering/Resolving]
  - Abdominal distension [Recovering/Resolving]
  - Nausea [Recovering/Resolving]
  - Adverse drug reaction [Recovered/Resolved]
